FAERS Safety Report 4343275-X (Version None)
Quarter: 2004Q1

REPORT INFORMATION
  Report Type: 
  Country: None (occurrence: None)
  Receive Date: 20040325
  Receipt Date: 20040123
  Transmission Date: 20041129
  Serious: No
  Sender: FDA-Public Use
  Company Number: USA031153365

PATIENT
  Age: 74 Year
  Sex: Female

DRUGS (3)
  1. FORTEO [Suspect]
     Indication: OSTEOPOROSIS
  2. EVISTA [Concomitant]
  3. CALCIUM [Concomitant]

REACTIONS (3)
  - COCCYDYNIA [None]
  - FATIGUE [None]
  - MUSCULAR WEAKNESS [None]
